FAERS Safety Report 6878350-9 (Version None)
Quarter: 2010Q3

REPORT INFORMATION
  Report Type: 
  Country: None (occurrence: None)
  Receive Date: 20100728
  Receipt Date: 20100720
  Transmission Date: 20110219
  Serious: Yes (Other)
  Sender: FDA-Public Use
  Company Number: IT-PFIZER INC-2010090832

PATIENT
  Age: 30 Year
  Sex: Male

DRUGS (2)
  1. ZELDOX [Suspect]
     Indication: BIPOLAR I DISORDER
     Dosage: 80 MG, 2X/DAY
     Route: 048
  2. RISPERDAL [Suspect]
     Indication: BIPOLAR I DISORDER
     Dosage: 1 TABLET IN THE EVENING

REACTIONS (2)
  - DRUG INEFFECTIVE [None]
  - HYPOTENSION [None]
